FAERS Safety Report 5501988-8 (Version None)
Quarter: 2007Q4

REPORT INFORMATION
  Report Type: 
  Country: None (occurrence: None)
  Receive Date: 20071030
  Receipt Date: 20071024
  Transmission Date: 20080405
  Serious: Yes (Hospitalization)
  Sender: FDA-Public Use
  Company Number: A0690611A

PATIENT
  Age: 47 Year
  Sex: Female

DRUGS (2)
  1. WELLBUTRIN [Suspect]
     Indication: DRUG USE FOR UNKNOWN INDICATION
     Dosage: 450MGD PER DAY
     Route: 048
  2. PEGASYS [Suspect]

REACTIONS (4)
  - CONCUSSION [None]
  - CONVULSION [None]
  - FALL [None]
  - HEAD INJURY [None]
